FAERS Safety Report 19923835 (Version 1)
Quarter: 2021Q4

REPORT INFORMATION
  Report Type: Spontaneous
  Country: US (occurrence: US)
  Receive Date: 20211005
  Receipt Date: 20211005
  Transmission Date: 20220304
  Serious: No
  Sender: FDA-Public Use
  Company Number: None

PATIENT
  Age: 60 Year
  Sex: Female

DRUGS (1)
  1. COSENTYX [Suspect]
     Active Substance: SECUKINUMAB
     Indication: Psoriatic arthropathy
     Dosage: INJECT 300MG (2 PENS) SUBCUTANEOUSLY EVERY  WEEK FOR 5  WEEKS AS DIRECTED
     Route: 058
     Dates: start: 202110

REACTIONS (3)
  - Hypotension [None]
  - Loss of consciousness [None]
  - Therapy interrupted [None]
